FAERS Safety Report 17393144 (Version 1)
Quarter: 2020Q1

REPORT INFORMATION
  Report Type: Spontaneous
  Country: US (occurrence: US)
  Receive Date: 20200207
  Receipt Date: 20200207
  Transmission Date: 20200409
  Serious: No
  Sender: FDA-Public Use
  Company Number: US-SUNOVION-2020SUN000324

PATIENT
  Age: 13 Year
  Sex: Female

DRUGS (5)
  1. MELATONIN [Concomitant]
     Active Substance: MELATONIN
     Dosage: 3 MG, HS (NIGHTLY)
     Route: 065
  2. SERTRALINE [Concomitant]
     Active Substance: SERTRALINE HYDROCHLORIDE
     Dosage: 100 MG .5MG ONCE DAILY
     Route: 065
  3. NORETHINDRONE. [Concomitant]
     Active Substance: NORETHINDRONE
     Dosage: 0.35 MG, QD
     Route: 065
  4. PROPRANOLOL [Concomitant]
     Active Substance: PROPRANOLOL HYDROCHLORIDE
     Dosage: 20 MG, TID
     Route: 065
  5. LATUDA [Suspect]
     Active Substance: LURASIDONE HYDROCHLORIDE
     Dosage: 80 MG, QD (AT DINNER)
     Route: 048

REACTIONS (3)
  - Rheumatic disorder [Unknown]
  - Back pain [Unknown]
  - Akathisia [Unknown]
